FAERS Safety Report 5171361-3 (Version None)
Quarter: 2006Q4

REPORT INFORMATION
  Report Type: 
  Country: None (occurrence: None)
  Receive Date: 20061213
  Receipt Date: 20061012
  Transmission Date: 20070319
  Serious: Yes (Hospitalization)
  Sender: FDA-Public Use
  Company Number: US-AMGEN-STX196896

PATIENT
  Sex: Female

DRUGS (5)
  1. ENBREL [Suspect]
     Indication: RHEUMATOID ARTHRITIS
     Route: 058
     Dates: start: 20020401, end: 20061015
  2. ARAVA [Concomitant]
     Route: 048
     Dates: start: 20000101
  3. CLONIDINE [Concomitant]
  4. MAXZIDE [Concomitant]
  5. ACTONEL [Concomitant]

REACTIONS (1)
  - NEOPLASM MALIGNANT [None]
